FAERS Safety Report 9293743 (Version 1)
Quarter: 2013Q2

REPORT INFORMATION
  Report Type: Spontaneous
  Country: US (occurrence: US)
  Receive Date: 20130516
  Receipt Date: 20130516
  Transmission Date: 20140414
  Serious: Yes (Other)
  Sender: FDA-Public Use
  Company Number: CHPA2013US008273

PATIENT
  Age: 77 Year
  Sex: Male

DRUGS (3)
  1. MYOFLEX ANALGESIC CREME [Suspect]
     Indication: MUSCULOSKELETAL PAIN
     Dosage: UNK, UNK
     Route: 061
  2. MYOFLEX ANALGESIC CREME [Suspect]
     Indication: PROCEDURAL PAIN
  3. HYDROCODONE/ACETAMINOPHEN          /01554201/ [Concomitant]

REACTIONS (6)
  - Pneumonia [Not Recovered/Not Resolved]
  - Pain [Recovered/Resolved]
  - Muscle strain [Not Recovered/Not Resolved]
  - Musculoskeletal pain [Unknown]
  - Off label use [Unknown]
  - Expired drug administered [Unknown]
